FAERS Safety Report 5542784-5 (Version None)
Quarter: 2007Q4

REPORT INFORMATION
  Report Type: 
  Country: None (occurrence: None)
  Receive Date: 20071207
  Receipt Date: 20071130
  Transmission Date: 20080405
  Serious: Yes (Hospitalization)
  Sender: FDA-Public Use
  Company Number: 2007SP024168

PATIENT
  Age: 55 Year
  Sex: Male

DRUGS (1)
  1. INTRON A (INTERERON ALFA-2B RECOMBINANT) [Suspect]
     Indication: HEPATITIS C
     Dates: start: 20020101

REACTIONS (2)
  - FALL [None]
  - JOINT INJURY [None]
